FAERS Safety Report 13705597 (Version 1)
Quarter: 2017Q2

REPORT INFORMATION
  Report Type: Report from Study
  Country: None (occurrence: US)
  Receive Date: 20170630
  Receipt Date: 20170630
  Transmission Date: 20170830
  Serious: No
  Sender: FDA-Public Use
  Company Number: US-IPSEN BIOPHARMACEUTICALS, INC.-2014-2160

PATIENT
  Age: 35 Year
  Sex: Female
  Weight: 95 kg

DRUGS (8)
  1. SOMATULINE DEPOT [Suspect]
     Active Substance: LANREOTIDE ACETATE
     Indication: ACROMEGALY
     Dosage: 90 MG
     Route: 058
     Dates: start: 20140418
  2. SEROQUEL [Concomitant]
     Active Substance: QUETIAPINE FUMARATE
     Indication: DEPRESSION
     Dosage: NOT REPORTED
     Route: 065
     Dates: start: 201112, end: 20140329
  3. LAMICTAL [Concomitant]
     Active Substance: LAMOTRIGINE
     Indication: PRODUCT USED FOR UNKNOWN INDICATION
     Route: 065
  4. COGENTIN [Concomitant]
     Active Substance: BENZTROPINE MESYLATE
     Indication: ADVERSE DRUG REACTION
     Dosage: NOT REPORTED
     Route: 065
     Dates: start: 2012, end: 20140408
  5. VITAMIN D,C,B12 [Concomitant]
     Indication: PRODUCT USED FOR UNKNOWN INDICATION
     Dosage: NOT REPORTED
     Route: 065
  6. FOLIC ACID. [Concomitant]
     Active Substance: FOLIC ACID
     Indication: PRODUCT USED FOR UNKNOWN INDICATION
     Dosage: NOT REPORTED
     Route: 065
  7. AMOXICILLIN. [Concomitant]
     Active Substance: AMOXICILLIN
     Indication: PROPHYLAXIS
     Dosage: NOT REPORTED
     Route: 065
  8. CELEXA [Concomitant]
     Active Substance: CITALOPRAM HYDROBROMIDE
     Indication: PRODUCT USED FOR UNKNOWN INDICATION
     Route: 065

REACTIONS (11)
  - Pruritus [None]
  - Dizziness [None]
  - Nausea [None]
  - Constipation [Not Recovered/Not Resolved]
  - Blood magnesium decreased [Unknown]
  - Gastrointestinal pain [Unknown]
  - Chest pain [Not Recovered/Not Resolved]
  - Diarrhoea [None]
  - Menstruation delayed [None]
  - Somnolence [None]
  - Pain in extremity [Unknown]

NARRATIVE: CASE EVENT DATE: 2014
